FAERS Safety Report 10447263 (Version 1)
Quarter: 2014Q3

REPORT INFORMATION
  Report Type: Spontaneous
  Country: FR (occurrence: FR)
  Receive Date: 20140911
  Receipt Date: 20140911
  Transmission Date: 20150326
  Serious: Yes (Hospitalization)
  Sender: FDA-Public Use
  Company Number: FR-GE HEALTHCARE MEDICAL DIAGNOSTICS-OMPQ-PR-1409S-1096

PATIENT
  Age: 55 Year
  Sex: Female
  Weight: 55 kg

DRUGS (9)
  1. LERCANDIPINE [Concomitant]
  2. BILASKA [Concomitant]
     Active Substance: BILASTINE
  3. LYRICA [Concomitant]
     Active Substance: PREGABALIN
  4. OMNIPAQUE [Suspect]
     Active Substance: IOHEXOL
     Indication: PRODUCT USED FOR UNKNOWN INDICATION
     Route: 042
     Dates: start: 20140827, end: 20140827
  5. OMNIPAQUE [Suspect]
     Active Substance: IOHEXOL
     Indication: DIAGNOSTIC PROCEDURE
  6. ZOFENIL [Concomitant]
     Active Substance: ZOFENOPRIL
  7. ATORVASTATIN [Concomitant]
     Active Substance: ATORVASTATIN
  8. KARDEGIC [Concomitant]
     Active Substance: ASPIRIN LYSINE
  9. DIFFU K [Concomitant]
     Active Substance: POTASSIUM CHLORIDE

REACTIONS (3)
  - Pruritus [Not Recovered/Not Resolved]
  - Erythema [Not Recovered/Not Resolved]
  - Swelling face [Not Recovered/Not Resolved]

NARRATIVE: CASE EVENT DATE: 20140827
